FAERS Safety Report 17312564 (Version 2)
Quarter: 2020Q1

REPORT INFORMATION
  Report Type: Spontaneous
  Country: US (occurrence: US)
  Receive Date: 20200123
  Receipt Date: 20200219
  Transmission Date: 20200409
  Serious: Yes (Hospitalization)
  Sender: FDA-Public Use
  Company Number: US-ASTRAZENECA-2020SE09619

PATIENT
  Sex: Female

DRUGS (1)
  1. PULMICORT FLEXHALER [Suspect]
     Active Substance: BUDESONIDE
     Indication: ASTHMA
     Route: 055
     Dates: start: 2019

REACTIONS (10)
  - Bronchitis [Unknown]
  - Wrong technique in device usage process [Unknown]
  - Heart rate increased [Unknown]
  - Incorrect dose administered by device [Unknown]
  - Hypertension [Unknown]
  - Dysphonia [Not Recovered/Not Resolved]
  - Intentional product misuse [Unknown]
  - Device issue [Unknown]
  - Malaise [Not Recovered/Not Resolved]
  - Infection [Not Recovered/Not Resolved]
